FAERS Safety Report 7777164-5 (Version None)
Quarter: 2011Q3

REPORT INFORMATION
  Report Type: 
  Country: None (occurrence: None)
  Receive Date: 20110922
  Receipt Date: 20110915
  Transmission Date: 20111222
  Serious: Yes (Life-Threatening, Hospitalization, Other)
  Sender: FDA-Public Use
  Company Number: 2011SP043522

PATIENT
  Age: 46 Year
  Sex: Female

DRUGS (6)
  1. IBUPROFEN [Suspect]
     Indication: MIGRAINE
     Dosage: 600 MG; Q3W; PO
     Route: 048
     Dates: start: 20050101, end: 20110414
  2. OLMESARTAN MEDOXOMIL AND HYDROCHLOROTHIZIDE [Concomitant]
  3. FALITHROM (PHENPROCOUMON /00034501/) [Suspect]
     Indication: DEEP VEIN THROMBOSIS
     Dosage: 3 MG; QD; PO
     Route: 048
     Dates: start: 20101202, end: 20110417
  4. CIPRO [Suspect]
     Indication: URINARY TRACT INFECTION
     Dosage: 500 MG; BID; PO
     Route: 048
     Dates: start: 20110415, end: 20110417
  5. CERAZETTE (DESOGESTREL /00754001/) [Suspect]
     Indication: ORAL CONTRACEPTION
     Dosage: 75 MCG;QD;PO
     Route: 048
     Dates: start: 20110107, end: 20110417
  6. EFEROX [Concomitant]

REACTIONS (10)
  - DRUG INEFFECTIVE [None]
  - HEPATOTOXICITY [None]
  - URINARY TRACT INFECTION [None]
  - HEPATIC FAILURE [None]
  - DEEP VEIN THROMBOSIS [None]
  - HEPATITIS ACUTE [None]
  - CHOLESTASIS [None]
  - PROTHROMBIN TIME PROLONGED [None]
  - HEPATIC ENCEPHALOPATHY [None]
  - RENAL PAIN [None]
